FAERS Safety Report 5025716-8 (Version None)
Quarter: 2006Q2

REPORT INFORMATION
  Report Type: 
  Country: None (occurrence: None)
  Receive Date: 20060427
  Receipt Date: 20050922
  Transmission Date: 20061013
  Serious: Yes (Other)
  Sender: FDA-Public Use
  Company Number: 2005104333

PATIENT
  Age: 56 Year
  Sex: Female

DRUGS (7)
  1. ZITHROMAX [Suspect]
     Indication: ASTHMA
     Dosage: 500 MG (500 MG, 1 IN 1 D), ORAL
     Route: 048
     Dates: start: 20050715, end: 20050717
  2. PRILOSEC [Concomitant]
  3. ATENOLOL [Concomitant]
  4. MULTIVITAMIN (ASCORBIC ACID, ERGOCALCIFEROL, FOLIC ACID, NICOTINAMIDE, [Concomitant]
  5. B12 SUPPLEMENT (CYANOCOBALAMIN-TANNIN COMPLEX) [Concomitant]
  6. VIACTIV (CALCIUM) [Concomitant]
  7. METAMUCIL (PSYLLIUM) [Concomitant]

REACTIONS (7)
  - EAR DISCOMFORT [None]
  - HYPOACUSIS [None]
  - OSSICLE DISORDER [None]
  - PAIN [None]
  - TINNITUS [None]
  - TYMPANIC MEMBRANE DISORDER [None]
  - TYMPANIC MEMBRANE HYPERAEMIA [None]
